FAERS Safety Report 6555764-8 (Version None)
Quarter: 2010Q1

REPORT INFORMATION
  Report Type: 
  Country: None (occurrence: None)
  Receive Date: 20100127
  Receipt Date: 20100121
  Transmission Date: 20100710
  Serious: No
  Sender: FDA-Public Use
  Company Number: DL2010-0059

PATIENT
  Age: 32 Year
  Sex: Female

DRUGS (3)
  1. MIFEPRISTONE (MIFEPREX) [Suspect]
     Indication: ABORTION INDUCED
     Dosage: 200 MG , ORAL
     Route: 048
     Dates: start: 20091214
  2. MISOPROSTOL [Suspect]
     Dosage: 800 MCG, BUCCAL
     Route: 002
     Dates: start: 20091215
  3. DOXYCYCLINE [Concomitant]

REACTIONS (5)
  - ABORTION INCOMPLETE [None]
  - DIZZINESS [None]
  - HYPERHIDROSIS [None]
  - MENORRHAGIA [None]
  - MUSCLE SPASMS [None]
